FAERS Safety Report 4450567-2 (Version None)
Quarter: 2004Q3

REPORT INFORMATION
  Report Type: 
  Country: None (occurrence: None)
  Receive Date: 20040914
  Receipt Date: 20040908
  Transmission Date: 20050211
  Serious: Yes (Death, Hospitalization, Other)
  Sender: FDA-Public Use
  Company Number: 200420134BWH

PATIENT
  Age: 78 Year
  Sex: Female

DRUGS (2)
  1. TRASYLOL [Suspect]
     Indication: VALVULOPLASTY CARDIAC
     Dosage: INTRAVENOUS
     Route: 042
  2. DOBUTREX [Concomitant]

REACTIONS (6)
  - BRADYCARDIA [None]
  - CARDIAC FIBRILLATION [None]
  - EJECTION FRACTION DECREASED [None]
  - HYPOTENSION [None]
  - PO2 DECREASED [None]
  - PULMONARY EMBOLISM [None]
